FAERS Safety Report 24221986 (Version 1)
Quarter: 2024Q3

REPORT INFORMATION
  Report Type: Report from Study
  Country: IL (occurrence: IL)
  Receive Date: 20240819
  Receipt Date: 20240819
  Transmission Date: 20241017
  Serious: Yes (Hospitalization)
  Sender: AMGEN
  Company Number: IL-AMGEN-ISRSP2024160288

PATIENT
  Sex: Male

DRUGS (1)
  1. TEPROTUMUMAB [Suspect]
     Active Substance: TEPROTUMUMAB
     Indication: Product used for unknown indication
     Dosage: 1500
     Route: 065

REACTIONS (3)
  - Encephalopathy [Unknown]
  - Pyrexia [Unknown]
  - Chills [Unknown]
